FAERS Safety Report 7977822-3 (Version None)
Quarter: 2011Q4

REPORT INFORMATION
  Report Type: 
  Country: None (occurrence: None)
  Receive Date: 20111214
  Receipt Date: 20111130
  Transmission Date: 20120403
  Serious: Yes (Other)
  Sender: FDA-Public Use
  Company Number: US-AMGEN-USASP2011034075

PATIENT
  Age: 56 Year
  Sex: Female

DRUGS (1)
  1. ENBREL [Suspect]
     Indication: PSORIASIS
     Dosage: 50 MG, QWK
     Route: 058
     Dates: start: 20110116

REACTIONS (7)
  - CELLULITIS [None]
  - INJECTION SITE REACTION [None]
  - FURUNCLE [None]
  - STAPHYLOCOCCAL INFECTION [None]
  - INJECTION SITE INDURATION [None]
  - INJECTION SITE ERYTHEMA [None]
  - PYREXIA [None]
